FAERS Safety Report 14853850 (Version 1)
Quarter: 2018Q2

REPORT INFORMATION
  Report Type: Spontaneous
  Country: US (occurrence: US)
  Receive Date: 20180507
  Receipt Date: 20180507
  Transmission Date: 20180711
  Serious: Yes (Hospitalization)
  Sender: FDA-Public Use
  Company Number: US-ALLERGAN-1824302US

PATIENT
  Age: 73 Year
  Sex: Female

DRUGS (3)
  1. DONEPEZIL. [Suspect]
     Active Substance: DONEPEZIL
     Indication: DELIRIUM
     Dosage: 10 MG, QD
     Route: 065
  2. RISPERIDONE. [Interacting]
     Active Substance: RISPERIDONE
     Indication: DELIRIUM
     Dosage: 1 MG, UNK
     Route: 065
  3. FLUOXETINE HCL UNK [Suspect]
     Active Substance: FLUOXETINE HYDROCHLORIDE
     Indication: DELIRIUM
     Dosage: 20 MG, QD
     Route: 065

REACTIONS (12)
  - Immobile [Recovered/Resolved]
  - Drug interaction [Unknown]
  - Blunted affect [Recovered/Resolved]
  - Extrapyramidal disorder [Unknown]
  - Off label use [Unknown]
  - Gait disturbance [Recovered/Resolved]
  - Speech disorder [Unknown]
  - Corneal reflex decreased [Unknown]
  - Cogwheel rigidity [Recovered/Resolved]
  - Suspiciousness [Recovering/Resolving]
  - Decreased appetite [Recovering/Resolving]
  - Agitation [Recovering/Resolving]
